FAERS Safety Report 6124282-3 (Version None)
Quarter: 2009Q1

REPORT INFORMATION
  Report Type: 
  Country: None (occurrence: None)
  Receive Date: 20090317
  Receipt Date: 20090304
  Transmission Date: 20090719
  Serious: Yes (Other)
  Sender: FDA-Public Use
  Company Number: 430035M04USA

PATIENT
  Age: 54 Year
  Sex: Female
  Weight: 57 kg

DRUGS (7)
  1. NOVANTRONE [Suspect]
     Indication: MULTIPLE SCLEROSIS
     Dosage: 9.5 MG,
     Dates: start: 20040101, end: 20040601
  2. NOVANTRONE [Suspect]
     Indication: MULTIPLE SCLEROSIS
     Dosage: 9.5 MG,
     Dates: start: 20040623, end: 20040601
  3. AVONEX [Suspect]
     Indication: MULTIPLE SCLEROSIS
     Dates: end: 20040926
  4. PROVIGIL [Concomitant]
  5. BACLOFEN [Concomitant]
  6. ASCORBIC ACID [Concomitant]
  7. VITAMIN E (TOCOPHEROL /00110501/) [Concomitant]

REACTIONS (11)
  - BACK PAIN [None]
  - CARDIAC FAILURE CONGESTIVE [None]
  - CARDIOMYOPATHY [None]
  - ELECTROCARDIOGRAM POOR R-WAVE PROGRESSION [None]
  - FEELING HOT [None]
  - INFLUENZA LIKE ILLNESS [None]
  - INSOMNIA [None]
  - LEFT VENTRICULAR DYSFUNCTION [None]
  - MITRAL VALVE INCOMPETENCE [None]
  - PLEURAL EFFUSION [None]
  - PULMONARY HYPERTENSION [None]
